FAERS Safety Report 18554917 (Version 1)
Quarter: 2020Q4

REPORT INFORMATION
  Report Type: Spontaneous
  Country: US (occurrence: US)
  Receive Date: 20201127
  Receipt Date: 20201127
  Transmission Date: 20210114
  Serious: Yes (Hospitalization)
  Sender: FDA-Public Use
  Company Number: US-VERTEX PHARMACEUTICALS-2020-007741

PATIENT
  Sex: Female
  Weight: 69 kg

DRUGS (13)
  1. FISH OIL [Concomitant]
     Active Substance: FISH OIL
  2. TRIKAFTA [Suspect]
     Active Substance: ELEXACAFTOR\IVACAFTOR\TEZACAFTOR
     Indication: CYSTIC FIBROSIS
     Dosage: 100MG ELEXACAFTOR/50MG TEZACAFTOR/75MG IVACAFTOR AND 150MG IVACAFTOR, UNKNOWN FREQUENCY
     Route: 048
     Dates: start: 20191212, end: 2020
  3. VITAMIN D3 [Concomitant]
     Active Substance: CHOLECALCIFEROL
  4. TRIKAFTA [Suspect]
     Active Substance: ELEXACAFTOR\IVACAFTOR\TEZACAFTOR
     Dosage: 1 PILL IN THE MORNING AND 1 PILL IN THE EVENING
     Route: 048
     Dates: start: 2020
  5. TRIKAFTA [Suspect]
     Active Substance: ELEXACAFTOR\IVACAFTOR\TEZACAFTOR
     Dosage: 2 ORANGE TABLETS AM EVERY OTHER DAY ALTERNATING WITH 1 BLUE TABLET AM EVERY OTHER DAY
     Route: 048
     Dates: start: 2020
  6. DUPIXENT [Concomitant]
     Active Substance: DUPILUMAB
     Dosage: UNK
     Dates: start: 202005
  7. SERTRALINE HCL [Concomitant]
     Active Substance: SERTRALINE HYDROCHLORIDE
  8. LYRICA [Concomitant]
     Active Substance: PREGABALIN
  9. URSODIOL. [Concomitant]
     Active Substance: URSODIOL
  10. PULMOZYME [Concomitant]
     Active Substance: DORNASE ALFA
  11. ZENPEP [Concomitant]
     Active Substance: PANCRELIPASE AMYLASE\PANCRELIPASE LIPASE\PANCRELIPASE PROTEASE
     Dosage: 10-32-42K
  12. ZYRTEC [Concomitant]
     Active Substance: CETIRIZINE HYDROCHLORIDE
  13. CRESEMBA [Concomitant]
     Active Substance: ISAVUCONAZONIUM SULFATE

REACTIONS (7)
  - Skin haemorrhage [Not Recovered/Not Resolved]
  - Skin weeping [Not Recovered/Not Resolved]
  - Dry skin [Not Recovered/Not Resolved]
  - Eczema [Not Recovered/Not Resolved]
  - Pruritus [Not Recovered/Not Resolved]
  - Sleep disorder [Not Recovered/Not Resolved]
  - Skin exfoliation [Not Recovered/Not Resolved]

NARRATIVE: CASE EVENT DATE: 2020
